FAERS Safety Report 5801968-9 (Version None)
Quarter: 2008Q3

REPORT INFORMATION
  Report Type: 
  Country: None (occurrence: None)
  Receive Date: 20080702
  Receipt Date: 20080627
  Transmission Date: 20090109
  Serious: Yes (Other)
  Sender: FDA-Public Use
  Company Number: OPIR20080015

PATIENT
  Sex: Male

DRUGS (1)
  1. OPANA [Suspect]

REACTIONS (3)
  - DEHYDRATION [None]
  - DRUG ABUSE [None]
  - MUSCLE CONTRACTIONS INVOLUNTARY [None]
